FAERS Safety Report 16682659 (Version 2)
Quarter: 2019Q3

REPORT INFORMATION
  Report Type: Spontaneous
  Country: US (occurrence: US)
  Receive Date: 20190808
  Receipt Date: 20190821
  Transmission Date: 20191004
  Serious: No
  Sender: FDA-Public Use
  Company Number: US-B.I. PHARMACEUTICALS,INC./RIDGEFIELD-2019-BI-032197

PATIENT
  Age: 53 Year
  Sex: Male

DRUGS (2)
  1. JARDIANCE [Suspect]
     Active Substance: EMPAGLIFLOZIN
     Indication: DIABETES MELLITUS
     Route: 065
     Dates: start: 20190629
  2. RISANKIZUMAB [Suspect]
     Active Substance: RISANKIZUMAB
     Indication: PSORIASIS
     Route: 058
     Dates: start: 20190713

REACTIONS (3)
  - Sensitive skin [Unknown]
  - Respiratory rate increased [Recovered/Resolved]
  - Dyspnoea [Recovered/Resolved]

NARRATIVE: CASE EVENT DATE: 20190719
